FAERS Safety Report 7424155-X (Version None)
Quarter: 2011Q2

REPORT INFORMATION
  Report Type: 
  Country: None (occurrence: None)
  Receive Date: 20110419
  Receipt Date: 20110415
  Transmission Date: 20111010
  Serious: Yes (Other)
  Sender: FDA-Public Use
  Company Number: US-PFIZER INC-2011083590

PATIENT
  Sex: Female
  Weight: 58.96 kg

DRUGS (5)
  1. AMITRIPTYLINE [Concomitant]
     Indication: SLEEP DISORDER
  2. AMITRIPTYLINE [Concomitant]
     Indication: DEPRESSION
     Dosage: 150 MG, AS NEEDED
     Route: 048
     Dates: start: 20110301
  3. LYRICA [Suspect]
     Indication: EPILEPSY
     Dosage: 50 MG, 2X/DAY
     Route: 048
     Dates: start: 20110201
  4. LYRICA [Suspect]
     Indication: CONVULSION
     Dosage: 100 MG, 2X/DAY
     Route: 048
  5. TRAZODONE [Suspect]
     Dosage: 200 MG, 1X/DAY
     Route: 048
     Dates: start: 20110414

REACTIONS (11)
  - TREMOR [None]
  - BALANCE DISORDER [None]
  - PARAESTHESIA ORAL [None]
  - RESPIRATION ABNORMAL [None]
  - AGITATION [None]
  - HEART RATE INCREASED [None]
  - PARAESTHESIA [None]
  - DRY MOUTH [None]
  - ANXIETY [None]
  - DEPRESSION [None]
  - MOOD ALTERED [None]
